FAERS Safety Report 15433122 (Version 1)
Quarter: 2018Q3

REPORT INFORMATION
  Report Type: Spontaneous
  Country: US (occurrence: US)
  Receive Date: 20180927
  Receipt Date: 20180927
  Transmission Date: 20181010
  Serious: No
  Sender: FDA-Public Use
  Company Number: US-NOVEN PHARMACEUTICALS, INC.-US2018000077

PATIENT

DRUGS (2)
  1. COMBIPATCH [Suspect]
     Active Substance: ESTRADIOL\NORETHINDRONE ACETATE
     Indication: PRODUCT USED FOR UNKNOWN INDICATION
     Dosage: 0.05/0.25 MG, UNKNOWN
     Route: 062
     Dates: start: 201801, end: 20180123
  2. COMBIPATCH [Suspect]
     Active Substance: ESTRADIOL\NORETHINDRONE ACETATE
     Dosage: LOWER DOSAGE
     Route: 062

REACTIONS (5)
  - Product adhesion issue [Recovered/Resolved]
  - Product quality issue [Recovered/Resolved]
  - Application site urticaria [Not Recovered/Not Resolved]
  - Therapy cessation [Not Recovered/Not Resolved]
  - Rash [Unknown]

NARRATIVE: CASE EVENT DATE: 201801
